FAERS Safety Report 20116217 (Version 1)
Quarter: 2021Q4

REPORT INFORMATION
  Report Type: Spontaneous
  Country: US (occurrence: US)
  Receive Date: 20211126
  Receipt Date: 20211126
  Transmission Date: 20220303
  Serious: No
  Sender: FDA-Public Use
  Company Number: US-JNJFOC-20211146258

PATIENT

DRUGS (1)
  1. PEPCID COMPLETE [Suspect]
     Active Substance: CALCIUM CARBONATE\FAMOTIDINE\MAGNESIUM HYDROXIDE
     Indication: Product used for unknown indication
     Dosage: DOCTOR PRESCRIBED PATIENT TO TAKE THE PEPCID TWICE A DAY, NOT ALWAYS
     Route: 065

REACTIONS (1)
  - Headache [Unknown]

NARRATIVE: CASE EVENT DATE: 20211101
